FAERS Safety Report 8222451-X (Version None)
Quarter: 2012Q1

REPORT INFORMATION
  Report Type: 
  Country: None (occurrence: None)
  Receive Date: 20120320
  Receipt Date: 20120305
  Transmission Date: 20120608
  Serious: Yes (Other)
  Sender: FDA-Public Use
  Company Number: PHHY2012JP020468

PATIENT
  Age: 27 Year
  Sex: Male

DRUGS (1)
  1. CYCLOSPORINE [Suspect]
     Indication: APLASTIC ANAEMIA
     Dosage: UNK UKN, UNK

REACTIONS (3)
  - CARDIAC FAILURE CHRONIC [None]
  - RENAL FAILURE CHRONIC [None]
  - LYMPHOPROLIFERATIVE DISORDER [None]
